FAERS Safety Report 18369753 (Version 1)
Quarter: 2020Q4

REPORT INFORMATION
  Report Type: Spontaneous
  Country: MY (occurrence: MY)
  Receive Date: 20201012
  Receipt Date: 20201012
  Transmission Date: 20210114
  Serious: Yes (Hospitalization, Other)
  Sender: FDA-Public Use
  Company Number: MY-B.I. PHARMACEUTICALS,INC./RIDGEFIELD-2020-BI-052438

PATIENT
  Sex: Female

DRUGS (2)
  1. PRADAXA [Suspect]
     Active Substance: DABIGATRAN ETEXILATE MESYLATE
     Indication: CEREBROVASCULAR ACCIDENT PROPHYLAXIS
     Dates: end: 20200929
  2. PRADAXA [Suspect]
     Active Substance: DABIGATRAN ETEXILATE MESYLATE
     Indication: ATRIAL FIBRILLATION

REACTIONS (9)
  - Renal impairment [Unknown]
  - Infection [Unknown]
  - Chest pain [Not Recovered/Not Resolved]
  - Angina pectoris [Unknown]
  - Activated partial thromboplastin time prolonged [Recovering/Resolving]
  - International normalised ratio increased [Not Recovered/Not Resolved]
  - Anaemia [Not Recovered/Not Resolved]
  - Kidney infection [Unknown]
  - Haemoglobin decreased [Unknown]

NARRATIVE: CASE EVENT DATE: 20200929
